FAERS Safety Report 11840733 (Version 2)
Quarter: 2016Q1

REPORT INFORMATION
  Report Type: Spontaneous
  Country: US (occurrence: US)
  Receive Date: 20151216
  Receipt Date: 20160119
  Transmission Date: 20160525
  Serious: Yes (Hospitalization)
  Sender: FDA-Public Use
  Company Number: US-BAXTER-2015BAX067381

PATIENT
  Age: 60 Year
  Sex: Female

DRUGS (2)
  1. VANCOMYCIN INJECTION, USP [Suspect]
     Active Substance: VANCOMYCIN
     Indication: DIABETIC ULCER
     Route: 042
  2. VANCOMYCIN INJECTION, USP [Suspect]
     Active Substance: VANCOMYCIN
     Indication: OFF LABEL USE

REACTIONS (3)
  - Renal failure [Recovering/Resolving]
  - Seizure [Recovering/Resolving]
  - Red man syndrome [Recovering/Resolving]

NARRATIVE: CASE EVENT DATE: 201510
